FAERS Safety Report 13518689 (Version 2)
Quarter: 2017Q2

REPORT INFORMATION
  Report Type: Report from Study
  Country: GB (occurrence: GB)
  Receive Date: 20170505
  Receipt Date: 20170518
  Transmission Date: 20170830
  Serious: Yes (Hospitalization)
  Sender: FDA-Public Use
  Company Number: GB-EMD SERONO-E2B_80060727

PATIENT
  Age: 70 Year
  Sex: Female
  Weight: 85.5 kg

DRUGS (14)
  1. SEPTRIN [Concomitant]
     Active Substance: SULFAMETHOXAZOLE\TRIMETHOPRIM
     Indication: PROPHYLAXIS
     Dosage: 960 MG, 1X/DAY
     Route: 048
     Dates: start: 20170127
  2. AXITINIB [Suspect]
     Active Substance: AXITINIB
     Dosage: 2 MG, TWICE DAILY CONTINUOS
     Route: 048
     Dates: start: 20160923
  3. PREDNISOLONE. [Suspect]
     Active Substance: PREDNISOLONE
     Indication: ARTHRALGIA
     Dosage: 5 MG, 1X/DAY
     Route: 048
     Dates: start: 20170212, end: 20170215
  4. LANSOPRAZOLE. [Concomitant]
     Active Substance: LANSOPRAZOLE
     Indication: PROPHYLAXIS
     Dosage: 30 MG, 1X/DAY
     Route: 048
     Dates: start: 20170113
  5. LACIDIPINE [Concomitant]
     Active Substance: LACIDIPINE
     Indication: HYPERTENSION
     Dosage: 6 MG, 1X/DAY
     Route: 048
     Dates: start: 20160822
  6. COCODAMOL [Concomitant]
     Active Substance: ACETAMINOPHEN\CODEINE PHOSPHATE
     Indication: PAIN
     Dosage: 8/500 MG AS NEEDED
     Route: 048
     Dates: start: 20170119
  7. DALTEPARIN [Concomitant]
     Active Substance: DALTEPARIN
     Indication: PULMONARY EMBOLISM
     Dosage: 18000 IU, 1X/DAY
     Route: 058
     Dates: start: 20161014
  8. LEVOTHYROXINE. [Concomitant]
     Active Substance: LEVOTHYROXINE
     Indication: HYPOTHYROIDISM
     Dosage: 125 UG, 1X/DAY
     Route: 048
     Dates: start: 20170120
  9. ZOPICLONE [Concomitant]
     Active Substance: ZOPICLONE
     Indication: INSOMNIA
     Dosage: 3.75 MG, NOCTE
     Route: 048
     Dates: start: 20161021
  10. AXITINIB [Suspect]
     Active Substance: AXITINIB
     Indication: RENAL CELL CARCINOMA
     Dosage: 5 MG, 2X/DAY
     Route: 048
     Dates: start: 20160812
  11. ATENOLOL. [Concomitant]
     Active Substance: ATENOLOL
     Indication: HYPERTENSION
     Dosage: 50 MG, 1X/DAY
     Route: 048
     Dates: start: 20080101
  12. CALCI CHEW [Concomitant]
     Indication: PROPHYLAXIS
     Dosage: 1 TABLET, 2X/DAY
     Route: 048
     Dates: start: 20170127
  13. AVELUMAB [Suspect]
     Active Substance: AVELUMAB
     Indication: RENAL CELL CARCINOMA
     Dosage: 884 MG, EVERY 2 WEEKS
     Route: 042
     Dates: start: 20160812
  14. MOXONIDINE [Concomitant]
     Active Substance: MOXONIDINE
     Indication: HYPERTENSION
     Dosage: 200 UG, 2X/DAY
     Route: 048
     Dates: start: 20140101

REACTIONS (1)
  - Adrenal insufficiency [Recovered/Resolved with Sequelae]

NARRATIVE: CASE EVENT DATE: 20170217
